FAERS Safety Report 20511586 (Version 1)
Quarter: 2022Q1

REPORT INFORMATION
  Report Type: Spontaneous
  Country: US (occurrence: US)
  Receive Date: 20220224
  Receipt Date: 20220224
  Transmission Date: 20220424
  Serious: Yes (Other)
  Sender: FDA-Public Use
  Company Number: US-GLAXOSMITHKLINE-US2022GSK030898

PATIENT
  Sex: Male

DRUGS (6)
  1. ZANTAC [Suspect]
     Active Substance: RANITIDINE HYDROCHLORIDE
     Indication: Dyspepsia
     Dosage: 150 MG, AS NEEDED, WHEN I FELT HEARTBURN COMMING ON I TOOK IT
     Route: 065
     Dates: start: 200001, end: 200003
  2. ZANTAC [Suspect]
     Active Substance: RANITIDINE HYDROCHLORIDE
     Dosage: 300 MG, AS NEEDED, WHEN I FELT HEARTBURN COMMING ON I TOOK IT
     Route: 065
     Dates: start: 200001, end: 200003
  3. ZANTAC [Suspect]
     Active Substance: RANITIDINE HYDROCHLORIDE
     Dosage: UNKNOWN AT THIS TIME, AS NEEDED, WHEN I FELT HEARTBURN COMMING ON I TOOK IT
     Route: 065
     Dates: start: 200001, end: 200003
  4. ZANTAC [Suspect]
     Active Substance: RANITIDINE HYDROCHLORIDE
     Indication: Dyspepsia
     Dosage: 150 MG, AS NEEDED, WHEN I FELT HEARTBURN COMMING ON I TOOK IT
     Route: 065
     Dates: start: 200001, end: 200003
  5. ZANTAC [Suspect]
     Active Substance: RANITIDINE HYDROCHLORIDE
     Dosage: 300 MG, AS NEEDED, WHEN I FELT HEARTBURN COMMING ON I TOOK IT
     Route: 065
     Dates: start: 200001, end: 200003
  6. ZANTAC [Suspect]
     Active Substance: RANITIDINE HYDROCHLORIDE
     Dosage: UNKNOWN AT THIS TIME, AS NEEDED, WHEN I FELT HEARTBURN COMMING ON I TOOK IT
     Route: 065
     Dates: start: 200001, end: 200003

REACTIONS (2)
  - Colorectal cancer [Unknown]
  - Gastrointestinal carcinoma [Unknown]
